FAERS Safety Report 8385805-7 (Version None)
Quarter: 2012Q2

REPORT INFORMATION
  Report Type: 
  Country: None (occurrence: None)
  Receive Date: 20120523
  Receipt Date: 20120510
  Transmission Date: 20120825
  Serious: Yes (Other)
  Sender: FDA-Public Use
  Company Number: CA-1191797

PATIENT
  Age: 58 Year
  Sex: Female
  Weight: 77.1115 kg

DRUGS (5)
  1. LOVAZA [Concomitant]
  2. SYSTANE EYE DROPS (SYSTANE ULTRA) [Suspect]
     Indication: DRY EYE
     Dosage: (OPHTHALMIC)
     Route: 047
     Dates: start: 20120301, end: 20120301
  3. VITAMIN B-12 [Concomitant]
  4. VITAMIN D [Concomitant]
  5. LIBRAX [Concomitant]

REACTIONS (4)
  - PERIORBITAL HAEMATOMA [None]
  - EYE SWELLING [None]
  - DRUG HYPERSENSITIVITY [None]
  - OCULAR HYPERAEMIA [None]
